FAERS Safety Report 8951079 (Version 1)
Quarter: 2012Q4

REPORT INFORMATION
  Report Type: 
  Country: GB (occurrence: GB)
  Receive Date: 20121207
  Receipt Date: 20121207
  Transmission Date: 20130627
  Serious: Yes (Other)
  Sender: FDA-Public Use
  Company Number: GB-PFIZER INC-2012302934

PATIENT
  Age: 27 Year
  Sex: Female

DRUGS (1)
  1. OVRANETTE [Suspect]
     Dosage: UNK

REACTIONS (1)
  - Body mass index increased [Unknown]
